FAERS Safety Report 11313323 (Version 1)
Quarter: 2015Q3

REPORT INFORMATION
  Report Type: Spontaneous
  Country: VE (occurrence: VE)
  Receive Date: 20150727
  Receipt Date: 20150727
  Transmission Date: 20151125
  Serious: Yes (Death, Other)
  Sender: FDA-Public Use
  Company Number: VE-ASTELLAS-2015EU006958

PATIENT
  Age: 59 Year
  Sex: Male

DRUGS (2)
  1. XTANDI [Suspect]
     Active Substance: ENZALUTAMIDE
     Indication: HORMONE-REFRACTORY PROSTATE CANCER
     Dosage: 160 MG ONCE DAILY (40 MG X 120 CAP X 30 FND (X4) CAPSULES)
     Route: 048
     Dates: start: 20150501, end: 20150523
  2. IBANDRONATO DE CALCIO [Concomitant]
     Indication: METASTASES TO BONE
     Dosage: UNK, UNKNOWN FREQ.
     Route: 065

REACTIONS (4)
  - Lower gastrointestinal haemorrhage [Fatal]
  - Hepatic failure [Unknown]
  - Disseminated intravascular coagulation [Fatal]
  - Intestinal obstruction [Unknown]
